FAERS Safety Report 10365257 (Version 1)
Quarter: 2014Q3

REPORT INFORMATION
  Report Type: Spontaneous
  Country: US (occurrence: None)
  Receive Date: 20140804
  Receipt Date: 20140804
  Transmission Date: 20150326
  Serious: No
  Sender: FDA-Public Use
  Company Number: None

PATIENT
  Age: 34 Year
  Sex: Female
  Weight: 47.63 kg

DRUGS (1)
  1. KY WARMING [Suspect]
     Active Substance: HYDROXYPROPYL CELLULOSE\NIACIN\PEG-8 CAPRYLIC/CAPRIC GLYCERIDES\PROPYLENE GLYCOL\TOCOPHEROL
     Dosage: -- APPLIED TO A SURFACE, USUALLY THE SKIN
     Route: 061

REACTIONS (2)
  - Nausea [None]
  - Application site pain [None]

NARRATIVE: CASE EVENT DATE: 20140801
